FAERS Safety Report 4503649-0 (Version None)
Quarter: 2004Q3

REPORT INFORMATION
  Report Type: 
  Country: None (occurrence: None)
  Receive Date: 20040928
  Receipt Date: 20040609
  Transmission Date: 20050211
  Serious: No
  Sender: FDA-Public Use
  Company Number: 04P-163-0263518-00

PATIENT
  Age: 61 Year
  Sex: Female
  Weight: 65.318 kg

DRUGS (4)
  1. HUMIRA [Suspect]
     Indication: RHEUMATOID ARTHRITIS
     Dosage: 40 MG, 1 IN 2 WK, SUBCUTANEOUS
     Route: 058
     Dates: start: 20040501
  2. METHOTREXATE [Concomitant]
  3. CELECOXIB [Concomitant]
  4. RISEDRONATE SODIUM [Concomitant]

REACTIONS (9)
  - CONSTIPATION [None]
  - CONTUSION [None]
  - DIZZINESS [None]
  - DRY EYE [None]
  - FALL [None]
  - FLUID RETENTION [None]
  - HEADACHE [None]
  - KERATOCONJUNCTIVITIS SICCA [None]
  - PARAESTHESIA [None]
